FAERS Safety Report 6446793-3 (Version None)
Quarter: 2009Q4

REPORT INFORMATION
  Report Type: 
  Country: None (occurrence: None)
  Receive Date: 20091119
  Receipt Date: 20091109
  Transmission Date: 20100525
  Serious: Yes (Other)
  Sender: FDA-Public Use
  Company Number: PHEH2009US15454

PATIENT
  Sex: Female

DRUGS (1)
  1. DIOVAN [Suspect]
     Dosage: 40 MG, UNK

REACTIONS (3)
  - EXTRASYSTOLES [None]
  - EYE LASER SURGERY [None]
  - INTRAOCULAR PRESSURE INCREASED [None]
